FAERS Safety Report 7009377-4 (Version None)
Quarter: 2010Q3

REPORT INFORMATION
  Report Type: 
  Country: None (occurrence: None)
  Receive Date: 20100923
  Receipt Date: 20100915
  Transmission Date: 20110219
  Serious: Yes (Hospitalization, Other)
  Sender: FDA-Public Use
  Company Number: BR-ELI_LILLY_AND_COMPANY-BR201009004002

PATIENT
  Sex: Female
  Weight: 55 kg

DRUGS (4)
  1. HUMULIN N [Suspect]
     Indication: DIABETES MELLITUS
     Dosage: 30 IU, 2/D
     Route: 065
  2. HUMULIN R [Suspect]
     Indication: DIABETES MELLITUS
     Dosage: UNK, EACH EVENING
     Route: 065
  3. CAPTOPRIL [Concomitant]
     Indication: PROTEIN URINE
     Dosage: 25 MG, DAILY (1/D)
     Route: 048
     Dates: start: 20050101
  4. FUROSEMIDA                         /00032601/ [Concomitant]
     Indication: PROTEINURIA
     Dosage: 10 MG, DAILY (1/D)
     Route: 048
     Dates: start: 20050101

REACTIONS (5)
  - BLOOD GLUCOSE ABNORMAL [None]
  - BLOOD POTASSIUM ABNORMAL [None]
  - BLOOD SODIUM ABNORMAL [None]
  - DRUG INEFFECTIVE [None]
  - HYPERGLYCAEMIA [None]
